FAERS Safety Report 6117126-7 (Version None)
Quarter: 2009Q1

REPORT INFORMATION
  Report Type: 
  Country: None (occurrence: None)
  Receive Date: 20090314
  Receipt Date: 20090105
  Transmission Date: 20090719
  Serious: No
  Sender: FDA-Public Use
  Company Number: US-ABBOTT-09P-163-0496384-00

PATIENT
  Sex: Male
  Weight: 106.69 kg

DRUGS (1)
  1. HUMIRA [Suspect]
     Indication: CROHN'S DISEASE

REACTIONS (4)
  - DRUG INEFFECTIVE [None]
  - JOINT STIFFNESS [None]
  - JOINT SWELLING [None]
  - MYALGIA [None]
